FAERS Safety Report 5110586-X (Version None)
Quarter: 2006Q3

REPORT INFORMATION
  Report Type: 
  Country: None (occurrence: None)
  Receive Date: 20060915
  Receipt Date: 20060908
  Transmission Date: 20061208
  Serious: Yes (Other)
  Sender: FDA-Public Use
  Company Number: HQWYE620113SEP06

PATIENT
  Sex: Male

DRUGS (2)
  1. ADVIL ALLERGY SINUS [Suspect]
     Dosage: ORAL
     Route: 048
  2. ALCOHOL (ETHANOL, ) [Suspect]
     Dosage: CONSUMED 3-4 ABSOLUTE VODKA AND COKES, ORAL
     Route: 048

REACTIONS (3)
  - ACCIDENT [None]
  - ALCOHOL INTERACTION [None]
  - HOMICIDE [None]
